FAERS Safety Report 4784042-2 (Version None)
Quarter: 2005Q3

REPORT INFORMATION
  Report Type: 
  Country: None (occurrence: None)
  Receive Date: 20050930
  Receipt Date: 20050922
  Transmission Date: 20060218
  Serious: Yes (Hospitalization)
  Sender: FDA-Public Use
  Company Number: US-BOEHRINGER INGELHEIM PHARMACEUTICALS, INC.-2005-BP-16812BP

PATIENT
  Age: 81 Year
  Sex: Female

DRUGS (5)
  1. COMBIVENT [Suspect]
     Indication: ASTHMA
     Route: 055
     Dates: end: 20050701
  2. COMBIVENT [Suspect]
     Route: 055
  3. PLAVIX [Suspect]
  4. PULMACORT [Concomitant]
     Indication: ASTHMA
  5. ALLOPURINOL [Concomitant]
     Indication: GOUT

REACTIONS (5)
  - CORONARY ARTERY DISEASE [None]
  - CORONARY ARTERY STENOSIS [None]
  - LACRIMATION INCREASED [None]
  - PALPITATIONS [None]
  - RASH [None]
